FAERS Safety Report 24866979 (Version 1)
Quarter: 2025Q1

REPORT INFORMATION
  Report Type: Spontaneous
  Country: US (occurrence: US)
  Receive Date: 20250121
  Receipt Date: 20250121
  Transmission Date: 20250409
  Serious: No
  Sender: ROCHE
  Company Number: US-ROCHE-10000181635

PATIENT
  Sex: Female

DRUGS (12)
  1. XOLAIR [Suspect]
     Active Substance: OMALIZUMAB
     Indication: Asthma
     Route: 058
     Dates: start: 20240901
  2. advair disku [Concomitant]
  3. AVAPRO [Concomitant]
     Active Substance: IRBESARTAN
  4. CALCIUM [Concomitant]
     Active Substance: CALCIUM
  5. CELEBREX [Concomitant]
     Active Substance: CELECOXIB
  6. DULOXETINE [Concomitant]
     Active Substance: DULOXETINE
  7. FAMOTIDINE [Concomitant]
     Active Substance: FAMOTIDINE
  8. LEVOTHYROXINE [Concomitant]
     Active Substance: LEVOTHYROXINE
  9. MAGNESIUM [Concomitant]
     Active Substance: MAGNESIUM
  10. SIMVASTATIN [Concomitant]
     Active Substance: SIMVASTATIN
  11. TRAMADOL HCL [Concomitant]
     Active Substance: TRAMADOL HYDROCHLORIDE
  12. VITAMIN D [Concomitant]
     Active Substance: VITAMIN D NOS

REACTIONS (2)
  - Pruritus [Not Recovered/Not Resolved]
  - Mass [Not Recovered/Not Resolved]
